FAERS Safety Report 8422525-4 (Version None)
Quarter: 2012Q2

REPORT INFORMATION
  Report Type: 
  Country: None (occurrence: None)
  Receive Date: 20120608
  Receipt Date: 20120528
  Transmission Date: 20120825
  Serious: Yes (Other)
  Sender: FDA-Public Use
  Company Number: IT-TEVA-340201ISR

PATIENT
  Age: 70 Year
  Sex: Female

DRUGS (2)
  1. CARBAMAZEPINE [Suspect]
     Indication: EPILEPSY
     Route: 065
  2. CARBAMAZEPINE [Suspect]
     Dosage: 300 MILLIGRAM;
     Route: 065

REACTIONS (2)
  - TOXIC ENCEPHALOPATHY [None]
  - TOXICITY TO VARIOUS AGENTS [None]
